FAERS Safety Report 9744845 (Version 2)
Quarter: 2013Q4

REPORT INFORMATION
  Report Type: Report from Study
  Country: US (occurrence: US)
  Receive Date: 20131211
  Receipt Date: 20131211
  Transmission Date: 20140711
  Serious: Yes (Death, Hospitalization)
  Sender: FDA-Public Use
  Company Number: US-ROCHE-1107884

PATIENT
  Age: 66 Year
  Sex: Female
  Weight: 115.3 kg

DRUGS (3)
  1. BEVACIZUMAB [Suspect]
     Indication: ENDOMETRIAL CANCER
     Dosage: LAST DOSE PRIOR TO SAE 10 MAY 2012
     Route: 042
     Dates: start: 20120110
  2. PACLITAXEL [Suspect]
     Indication: ENDOMETRIAL CANCER
     Dosage: LAST DOSE PRIOR TO SAE 10 MAY 2012
     Route: 042
     Dates: start: 20120110
  3. CARBOPLATIN [Suspect]
     Indication: ENDOMETRIAL CANCER
     Dosage: AUC = 6, LAST DOSE PRIOR TO SAE 10 MAY 2012
     Route: 042
     Dates: start: 20120110

REACTIONS (2)
  - Death [Fatal]
  - Small intestinal perforation [Recovered/Resolved]
